FAERS Safety Report 4649899-4 (Version None)
Quarter: 2005Q2

REPORT INFORMATION
  Report Type: 
  Country: None (occurrence: None)
  Receive Date: 20050428
  Receipt Date: 20050415
  Transmission Date: 20051028
  Serious: Yes (Hospitalization, Other)
  Sender: FDA-Public Use
  Company Number: A-CH2003-03008

PATIENT
  Age: 34 Year
  Sex: Male
  Weight: 73 kg

DRUGS (7)
  1. TRACLEER [Suspect]
     Indication: PULMONARY HYPERTENSION
     Dosage: 125 MG, BID, ORAL; 62.5 MG, BID, ORAL
     Route: 048
     Dates: start: 20020913, end: 20021012
  2. TRACLEER [Suspect]
     Indication: PULMONARY HYPERTENSION
     Dosage: 125 MG, BID, ORAL; 62.5 MG, BID, ORAL
     Route: 048
     Dates: start: 20021013
  3. MARCUMAR [Concomitant]
  4. DREISAFER (ASCORBIC ACID, FERROUS SULFATE EXSICCATED) [Concomitant]
  5. SEREVENT [Concomitant]
  6. PANTOPRAZOLE SODIUM [Concomitant]
  7. FERRO-SANOL DUODENAL (FERROUS SULFATE) [Concomitant]

REACTIONS (9)
  - ANAEMIA [None]
  - BIOPSY BONE MARROW ABNORMAL [None]
  - ERYTHROPOIESIS ABNORMAL [None]
  - FAECES DISCOLOURED [None]
  - GASTRIC ULCER HAEMORRHAGE [None]
  - GASTROINTESTINAL ULCER [None]
  - HEPATIC NEOPLASM [None]
  - LEUKOPENIA [None]
  - PANCYTOPENIA [None]
